FAERS Safety Report 5138175-1 (Version None)
Quarter: 2006Q4

REPORT INFORMATION
  Report Type: 
  Country: None (occurrence: None)
  Receive Date: 20061025
  Receipt Date: 20061025
  Transmission Date: 20070319
  Serious: Yes (Other)
  Sender: FDA-Public Use
  Company Number: None

PATIENT
  Age: 81 Year
  Sex: Male
  Weight: 50.4 kg

DRUGS (18)
  1. BACTRIM [Suspect]
  2. LISINOPRIL [Concomitant]
  3. TERAZOSIN HCL [Concomitant]
  4. SULFAMETH/ TRIMETHOPRIM [Concomitant]
  5. HYPROMELLOSE [Concomitant]
  6. CETYLPYRIDINIUM CHLORIDE [Concomitant]
  7. GLIPIZIDE [Concomitant]
  8. METFORMIN HCL [Concomitant]
  9. ACETAMINOPHEN [Concomitant]
  10. MILK OF MAGNESIA TAB [Concomitant]
  11. DOCUSATE/SENNOSIDES [Concomitant]
  12. NITROGLYCERIN [Concomitant]
  13. METOPROLOL TARTRATE [Concomitant]
  14. ALBUTEROL SULFATE AND IPRATROPIUM BROMIDE [Concomitant]
  15. ALOH/MGOH/SIMTH [Concomitant]
  16. OMEPRAZOLE [Concomitant]
  17. LACTASE ENZYME [Concomitant]
  18. NITROGLYCERIN [Concomitant]

REACTIONS (1)
  - RASH [None]
